FAERS Safety Report 8417085 (Version 2)
Quarter: 2012Q4

REPORT INFORMATION
  Report Type: 
  Country: AT (occurrence: AT)
  Receive Date: 20120220
  Receipt Date: 20121010
  Transmission Date: 20130627
  Serious: Yes (Death)
  Sender: FDA-Public Use
  Company Number: AT-GLAXOSMITHKLINE-B0782392A

PATIENT
  Age: 68 Year
  Sex: Female

DRUGS (10)
  1. WELLBUTRIN [Suspect]
     Indication: PRODUCT USED FOR UNKNOWN INDICATION
     Dosage: 150MG per day
     Route: 065
     Dates: start: 20120209, end: 20120214
  2. CIPRALEX [Concomitant]
  3. PANTOPRAZOL [Concomitant]
  4. NORVASC [Concomitant]
  5. METFORMIN [Concomitant]
  6. LISINOPRIL [Concomitant]
  7. DILATREND [Concomitant]
  8. VOLTAROL [Concomitant]
  9. LESCOL [Concomitant]
  10. REMINYL [Concomitant]

REACTIONS (1)
  - Cardiac disorder [Fatal]
